FAERS Safety Report 8960870 (Version 2)
Quarter: 2013Q1

REPORT INFORMATION
  Report Type: Spontaneous
  Country: IT (occurrence: IT)
  Receive Date: 20121213
  Receipt Date: 20130214
  Transmission Date: 20140127
  Serious: Yes (Life-Threatening)
  Sender: FDA-Public Use
  Company Number: IT-MERCK-1212ITA003820

PATIENT
  Age: 43 Year
  Sex: Male

DRUGS (6)
  1. REBETOL [Suspect]
     Dosage: UNK MG, UNK
     Route: 048
     Dates: start: 20121026, end: 20121121
  2. PEGINTRON [Suspect]
     Indication: CHRONIC HEPATITIS C
     Dosage: 100 MICROGRAM, CYCLIC
     Route: 058
     Dates: start: 20121026, end: 20121121
  3. TRUVADA [Concomitant]
     Indication: ANTIRETROVIRAL THERAPY
     Dosage: 200 MG + 245 MG
     Route: 048
     Dates: start: 20060703
  4. LEUCOVORIN CALCIUM [Concomitant]
     Indication: ANTIRETROVIRAL THERAPY
     Dosage: 15 MG, UNK
     Route: 048
  5. NORVIR [Concomitant]
     Indication: ANTIRETROVIRAL THERAPY
     Dosage: 100 MG, UNK
     Route: 048
     Dates: start: 20120918
  6. PREZISTA [Concomitant]
     Indication: ANTIRETROVIRAL THERAPY
     Dosage: 800 MG, UNK
     Route: 048
     Dates: start: 20120918

REACTIONS (1)
  - Suicidal ideation [Unknown]
